FAERS Safety Report 13652275 (Version 2)
Quarter: 2017Q2

REPORT INFORMATION
  Report Type: Spontaneous
  Country: SI (occurrence: SI)
  Receive Date: 20170614
  Receipt Date: 20170623
  Transmission Date: 20170830
  Serious: Yes (Other)
  Sender: FDA-Public Use
  Company Number: SI-BAYER-2017-107907

PATIENT
  Sex: Female

DRUGS (1)
  1. STIVARGA [Suspect]
     Active Substance: REGORAFENIB
     Dosage: UNK
     Dates: start: 20170217, end: 20170414

REACTIONS (6)
  - General physical health deterioration [None]
  - Skin toxicity [None]
  - Fatigue [None]
  - Metastases to ovary [None]
  - Hypertension [None]
  - Neoplasm malignant [None]

NARRATIVE: CASE EVENT DATE: 2017
